FAERS Safety Report 8185462-9 (Version None)
Quarter: 2012Q1

REPORT INFORMATION
  Report Type: 
  Country: None (occurrence: None)
  Receive Date: 20120305
  Receipt Date: 20120228
  Transmission Date: 20120608
  Serious: Yes (Other)
  Sender: FDA-Public Use
  Company Number: GR-PFIZER INC-2012052333

PATIENT
  Age: 10 Year
  Sex: Male

DRUGS (1)
  1. ZITHROMAX [Suspect]
     Dosage: 3X/DAY FOR 3 DAYS
     Dates: start: 20120227

REACTIONS (1)
  - HALLUCINATION [None]
